FAERS Safety Report 8340660-6 (Version None)
Quarter: 2012Q2

REPORT INFORMATION
  Report Type: 
  Country: None (occurrence: None)
  Receive Date: 20120507
  Receipt Date: 20120426
  Transmission Date: 20120825
  Serious: Yes (Hospitalization, Other)
  Sender: FDA-Public Use
  Company Number: US-ROCHE-1043885

PATIENT
  Sex: Female
  Weight: 89.892 kg

DRUGS (4)
  1. OXYCODONE HCL [Concomitant]
     Indication: PAIN
     Route: 048
     Dates: start: 20120425
  2. LEXAPRO [Concomitant]
     Indication: ANXIETY
     Route: 048
     Dates: start: 20090411
  3. XELODA [Suspect]
     Indication: BREAST CANCER METASTATIC
     Route: 048
     Dates: start: 20120131
  4. FENTANYL-100 [Concomitant]
     Indication: PAIN
     Route: 062
     Dates: start: 20120425

REACTIONS (16)
  - CARDIAC DISORDER [None]
  - URTICARIA [None]
  - DYSPHEMIA [None]
  - COUGH [None]
  - CHEST PAIN [None]
  - HYPERHIDROSIS [None]
  - ASTHENIA [None]
  - HYPOTENSION [None]
  - DISORIENTATION [None]
  - GAIT DISTURBANCE [None]
  - VERTIGO [None]
  - PRURITUS [None]
  - PAIN [None]
  - CEREBROVASCULAR ACCIDENT [None]
  - RETCHING [None]
  - BACK PAIN [None]
